FAERS Safety Report 25721700 (Version 2)
Quarter: 2025Q3

REPORT INFORMATION
  Report Type: Report from Study
  Country: US (occurrence: US)
  Receive Date: 20250825
  Receipt Date: 20250919
  Transmission Date: 20251021
  Serious: Yes (Hospitalization, Other)
  Sender: ALEXION PHARMACEUTICALS
  Company Number: US-AstraZeneca-CH-00933122A

PATIENT
  Sex: Male

DRUGS (1)
  1. ULTOMIRIS [Suspect]
     Active Substance: RAVULIZUMAB-CWVZ
     Route: 065

REACTIONS (5)
  - Loss of consciousness [Recovering/Resolving]
  - Upper respiratory tract infection [Unknown]
  - Illness [Recovering/Resolving]
  - Cough [Recovering/Resolving]
  - Rib fracture [Recovering/Resolving]
